FAERS Safety Report 7436969-0 (Version None)
Quarter: 2011Q2

REPORT INFORMATION
  Report Type: 
  Country: None (occurrence: None)
  Receive Date: 20110426
  Receipt Date: 20110419
  Transmission Date: 20111010
  Serious: No
  Sender: FDA-Public Use
  Company Number: US-B.I. PHARMACEUTICALS,INC./RIDGEFIELD-2011-BP-05533BP

PATIENT
  Age: 49 Year
  Sex: Male

DRUGS (3)
  1. FIORINAL [Concomitant]
     Indication: MIGRAINE
     Route: 048
  2. PRADAXA [Suspect]
     Indication: ATRIAL FIBRILLATION
     Dosage: 300 MG
     Route: 048
     Dates: start: 20110212
  3. MULTAQ [Concomitant]
     Indication: ATRIAL FIBRILLATION
     Route: 048
     Dates: start: 20110213

REACTIONS (5)
  - NAUSEA [None]
  - CONSTIPATION [None]
  - PAIN IN EXTREMITY [None]
  - DYSPEPSIA [None]
  - FATIGUE [None]
